FAERS Safety Report 7177890-5 (Version None)
Quarter: 2010Q4

REPORT INFORMATION
  Report Type: 
  Country: None (occurrence: None)
  Receive Date: 20101220
  Receipt Date: 20101209
  Transmission Date: 20110411
  Serious: Yes (Death, Hospitalization)
  Sender: FDA-Public Use
  Company Number: JP-GENZYME-THYM-1002109

PATIENT
  Sex: Female
  Weight: 52 kg

DRUGS (13)
  1. THYMOGLOBULIN [Suspect]
     Indication: APLASTIC ANAEMIA
     Dosage: 3.75 MG/KG, QD
     Route: 042
     Dates: start: 20100915, end: 20100919
  2. PREDNISOLONE [Concomitant]
     Indication: PROPHYLAXIS
     Dosage: 50 MG, QD
     Route: 048
     Dates: start: 20100920, end: 20100928
  3. PREDNISOLONE [Concomitant]
     Dosage: 25 MG, QD
     Route: 048
     Dates: start: 20100929, end: 20101005
  4. PREDNISOLONE [Concomitant]
     Dosage: 10 MG, QD
     Route: 048
     Dates: start: 20101006, end: 20101012
  5. PREDNISOLONE [Concomitant]
     Dosage: 5 MG, QD
     Route: 048
     Dates: start: 20101014, end: 20101020
  6. PREDNISOLONE [Concomitant]
     Dosage: 5 MG, QOD
     Route: 048
     Dates: start: 20101021, end: 20101027
  7. LEVOFLOXACIN [Concomitant]
     Indication: PROPHYLAXIS
     Dosage: 500 MG, QD
     Route: 065
     Dates: start: 20100915, end: 20101027
  8. FLUCONAZOLE [Concomitant]
     Indication: PROPHYLAXIS
     Dosage: 200 MG, QD
     Route: 065
     Dates: start: 20100915, end: 20100922
  9. CYCLOSPORINE [Concomitant]
     Indication: APLASTIC ANAEMIA
     Dosage: 100 MG, BID
     Route: 065
     Dates: start: 20100510, end: 20101031
  10. METHYLPREDNISOLONE SODIUM SUCCINATE [Concomitant]
     Indication: PREMEDICATION
     Dosage: 125 MG, QD
     Route: 065
     Dates: start: 20100915, end: 20100919
  11. DIPHENHYDRAMINE HYDROCHLORIDE [Concomitant]
     Indication: PREMEDICATION
     Dosage: 30 MG, QD
     Route: 065
     Dates: start: 20100915, end: 20100919
  12. ACETAMINOPHEN [Concomitant]
     Indication: PREMEDICATION
     Dosage: 300 MG, QD
     Route: 065
     Dates: start: 20100915, end: 20100919
  13. ACYCLOVIR [Concomitant]
     Indication: PROPHYLAXIS
     Dosage: 200 MG, QD
     Route: 065

REACTIONS (5)
  - ACUTE HEPATIC FAILURE [None]
  - CYTOMEGALOVIRUS INFECTION [None]
  - EPSTEIN-BARR VIRUS ASSOCIATED LYMPHOPROLIFERATIVE DISORDER [None]
  - RENAL FAILURE ACUTE [None]
  - STENOTROPHOMONAS SEPSIS [None]
